FAERS Safety Report 8155297-1 (Version None)
Quarter: 2012Q1

REPORT INFORMATION
  Report Type: 
  Country: None (occurrence: None)
  Receive Date: 20120222
  Receipt Date: 20120213
  Transmission Date: 20120608
  Serious: No
  Sender: FDA-Public Use
  Company Number: US-BIOGENIDEC-2012BI005767

PATIENT
  Sex: Female

DRUGS (3)
  1. HERBS [Concomitant]
     Indication: PRODUCT USED FOR UNKNOWN INDICATION
  2. VITAMIN D [Concomitant]
     Indication: VITAMIN D DECREASED
  3. TYSABRI [Suspect]
     Indication: MULTIPLE SCLEROSIS
     Route: 042
     Dates: start: 20101117, end: 20120202

REACTIONS (7)
  - MUSCULOSKELETAL PAIN [None]
  - BACK PAIN [None]
  - MUSCULOSKELETAL CHEST PAIN [None]
  - FALL [None]
  - ASTHENIA [None]
  - ARTHRALGIA [None]
  - MUSCULOSKELETAL DISORDER [None]
